FAERS Safety Report 5069082-0 (Version None)
Quarter: 2006Q3

REPORT INFORMATION
  Report Type: 
  Country: None (occurrence: None)
  Receive Date: 20060731
  Receipt Date: 20060719
  Transmission Date: 20061208
  Serious: Yes (Congenital Anomaly)
  Sender: FDA-Public Use
  Company Number: 2006089733

PATIENT
  Sex: Male
  Weight: 3.3149 kg

DRUGS (3)
  1. DILANTIN [Suspect]
     Indication: EPILEPSY
  2. LAMICTAL [Suspect]
     Indication: EPILEPSY
  3. TOPAMAX [Suspect]
     Indication: EPILEPSY

REACTIONS (2)
  - DRUG EXPOSURE DURING PREGNANCY [None]
  - SPINA BIFIDA OCCULTA [None]
